FAERS Safety Report 8974860 (Version 1)
Quarter: 2012Q4

REPORT INFORMATION
  Report Type: 
  Country: GR (occurrence: GR)
  Receive Date: 20121219
  Receipt Date: 20121219
  Transmission Date: 20130627
  Serious: Yes (Other)
  Sender: FDA-Public Use
  Company Number: GR-TEVA-375850ISR

PATIENT
  Age: 74 Year
  Sex: Male
  Weight: 70 kg

DRUGS (2)
  1. TEMOZOLOMIDE [Suspect]
     Indication: GLIOBLASTOMA MULTIFORME
     Dosage: 140 Milligram Daily;
     Route: 048
     Dates: start: 20120809, end: 20120920
  2. METHYLPREDNISOLONE [Concomitant]
     Dosage: 48 Milligram Daily;

REACTIONS (3)
  - Pancytopenia [Not Recovered/Not Resolved]
  - Sinusitis [Unknown]
  - Osteomyelitis fungal [Not Recovered/Not Resolved]
